FAERS Safety Report 9279983 (Version 2)
Quarter: 2013Q2

REPORT INFORMATION
  Report Type: Spontaneous
  Country: BR (occurrence: BR)
  Receive Date: 20130509
  Receipt Date: 20130619
  Transmission Date: 20140414
  Serious: Yes (Other)
  Sender: FDA-Public Use
  Company Number: BR-ROCHE-1222595

PATIENT
  Age: 37 Year
  Sex: Female
  Weight: 71 kg

DRUGS (4)
  1. MABTHERA [Suspect]
     Indication: SYSTEMIC LUPUS ERYTHEMATOSUS
     Dosage: LAST INFUSION 30/APR/2013
     Route: 042
     Dates: start: 20130416
  2. CITALOPRAM [Concomitant]
     Indication: EPILEPSY
     Route: 048
     Dates: start: 2013
  3. TRILEPTAL [Concomitant]
     Indication: EPILEPSY
     Route: 048
     Dates: start: 2008
  4. PHENOBARBITAL [Concomitant]
     Route: 048
     Dates: start: 2008

REACTIONS (4)
  - Urticaria [Recovering/Resolving]
  - Laryngeal oedema [Unknown]
  - Dyspnoea [Recovered/Resolved]
  - Pruritus generalised [Recovering/Resolving]
